FAERS Safety Report 15579336 (Version 1)
Quarter: 2018Q4

REPORT INFORMATION
  Report Type: Spontaneous
  Country: BE (occurrence: BE)
  Receive Date: 20181102
  Receipt Date: 20181102
  Transmission Date: 20190205
  Serious: Yes (Other)
  Sender: FDA-Public Use
  Company Number: BE-TEVA-2018-BE-972189

PATIENT
  Age: 71 Year
  Sex: Female

DRUGS (2)
  1. WARFARIN [Interacting]
     Active Substance: WARFARIN
     Indication: ATRIAL FIBRILLATION
     Route: 065
  2. FLUCONAZOLE. [Suspect]
     Active Substance: FLUCONAZOLE
     Indication: ORAL CANDIDIASIS
     Route: 065

REACTIONS (4)
  - Drug interaction [Recovered/Resolved]
  - Haematoma [Recovered/Resolved]
  - Overdose [Unknown]
  - Dysphagia [Recovered/Resolved]
